FAERS Safety Report 18055464 (Version 1)
Quarter: 2020Q3

REPORT INFORMATION
  Report Type: Spontaneous
  Country: US (occurrence: US)
  Receive Date: 20200722
  Receipt Date: 20200722
  Transmission Date: 20201103
  Serious: Yes (Disabling, Other)
  Sender: FDA-Public Use
  Company Number: US-PURDUE-USA-2020-0158339

PATIENT
  Sex: Male

DRUGS (1)
  1. OXYCONTIN [Suspect]
     Active Substance: OXYCODONE HYDROCHLORIDE
     Indication: PRODUCT USED FOR UNKNOWN INDICATION
     Dosage: UNK
     Route: 048

REACTIONS (9)
  - Suicide attempt [Unknown]
  - Disability [Unknown]
  - Mental disorder [Unknown]
  - Drug dependence [Unknown]
  - Bipolar disorder [Unknown]
  - Imprisonment [Unknown]
  - Fibromyalgia [Unknown]
  - Pain [Unknown]
  - Nervous system disorder [Unknown]

NARRATIVE: CASE EVENT DATE: 1998
